FAERS Safety Report 9766764 (Version 1)
Quarter: 2013Q4

REPORT INFORMATION
  Report Type: Spontaneous
  Country: US (occurrence: US)
  Receive Date: 20131217
  Receipt Date: 20131217
  Transmission Date: 20140711
  Serious: No
  Sender: FDA-Public Use
  Company Number: US-GLAXOSMITHKLINE-A1033107A

PATIENT
  Age: 52 Year
  Sex: Male

DRUGS (6)
  1. VOTRIENT [Suspect]
     Indication: PRODUCT USED FOR UNKNOWN INDICATION
     Dosage: 4TAB PER DAY
     Route: 048
     Dates: start: 20130612, end: 20130712
  2. NEURONTIN [Concomitant]
  3. CYMBALTA [Concomitant]
  4. MOBIC [Concomitant]
  5. METHADONE [Concomitant]
  6. ROXICODONE [Concomitant]

REACTIONS (1)
  - Pleural effusion [Unknown]
